FAERS Safety Report 16342267 (Version 1)
Quarter: 2019Q2

REPORT INFORMATION
  Report Type: Spontaneous
  Country: US (occurrence: US)
  Receive Date: 20190522
  Receipt Date: 20190522
  Transmission Date: 20190711
  Serious: Yes (Other)
  Sender: FDA-Public Use
  Company Number: US-PFIZER INC-2019210539

PATIENT
  Age: 69 Year
  Sex: Male
  Weight: 117 kg

DRUGS (16)
  1. METFORMIN [Concomitant]
     Active Substance: METFORMIN HYDROCHLORIDE
     Indication: DIABETES MELLITUS
     Dosage: 500 MG, 2X/DAY
     Route: 048
     Dates: start: 2012
  2. OMEPRAZOLE. [Concomitant]
     Active Substance: OMEPRAZOLE
     Indication: DYSPEPSIA
  3. AMLODIPINE [Concomitant]
     Active Substance: AMLODIPINE BESYLATE
     Indication: BLOOD PRESSURE ABNORMAL
     Dosage: 5 MG, 1X/DAY
     Route: 048
     Dates: start: 201811
  4. FLECAINIDE ACETATE. [Concomitant]
     Active Substance: FLECAINIDE ACETATE
     Indication: HEART RATE ABNORMAL
     Dosage: 100 MG, 2X/DAY
     Route: 048
     Dates: start: 2014
  5. TYLENOL [Concomitant]
     Active Substance: ACETAMINOPHEN
     Indication: BACK PAIN
     Dosage: 650 MG, AS NEEDED
     Route: 048
     Dates: start: 2000
  6. LYRICA [Suspect]
     Active Substance: PREGABALIN
     Indication: DIABETIC NEPHROPATHY
     Dosage: 75 MG, 2X/DAY
     Route: 048
     Dates: start: 201809
  7. MELOXICAM. [Concomitant]
     Active Substance: MELOXICAM
     Indication: MYALGIA
  8. LISINOPRIL. [Concomitant]
     Active Substance: LISINOPRIL
     Indication: HYPERTENSION
     Dosage: 40 MG, 1X/DAY
     Route: 048
     Dates: start: 2012
  9. ASPIRIN [ACETYLSALICYLIC ACID] [Concomitant]
     Active Substance: ASPIRIN
     Indication: CARDIAC DISORDER
     Dosage: 81 MG, 1X/DAY
     Route: 048
     Dates: start: 2012
  10. OMEPRAZOLE. [Concomitant]
     Active Substance: OMEPRAZOLE
     Indication: GASTROOESOPHAGEAL REFLUX DISEASE
     Dosage: 40 MG, 1X/DAY
     Route: 048
     Dates: start: 2012
  11. LOVASTATIN. [Concomitant]
     Active Substance: LOVASTATIN
     Dosage: 10 MG, 1X/DAY
     Route: 048
     Dates: start: 2012
  12. TYLENOL [Concomitant]
     Active Substance: ACETAMINOPHEN
     Indication: ARTHRALGIA
  13. MELOXICAM. [Concomitant]
     Active Substance: MELOXICAM
     Indication: BACK PAIN
     Dosage: 7.5 MG, 1X/DAY
     Route: 048
     Dates: start: 201811
  14. METOPROLOL TARTRATE. [Concomitant]
     Active Substance: METOPROLOL TARTRATE
     Indication: HEART RATE ABNORMAL
     Dosage: 25 MG, 2X/DAY
     Route: 048
     Dates: start: 2014
  15. RANITIDINE. [Concomitant]
     Active Substance: RANITIDINE
     Indication: GASTROOESOPHAGEAL REFLUX DISEASE
     Dosage: 150 MG, 2X/DAY
     Route: 048
     Dates: start: 201810
  16. HYDROCHLOROTHIAZIDE. [Concomitant]
     Active Substance: HYDROCHLOROTHIAZIDE
     Dosage: 50 MG, 1X/DAY
     Route: 048
     Dates: start: 2012

REACTIONS (9)
  - Dry skin [Not Recovered/Not Resolved]
  - Musculoskeletal discomfort [Unknown]
  - Off label use [Unknown]
  - Paraesthesia [Not Recovered/Not Resolved]
  - Influenza [Unknown]
  - Varicose vein [Unknown]
  - Muscle disorder [Unknown]
  - Weight increased [Unknown]
  - Thyroid mass [Unknown]

NARRATIVE: CASE EVENT DATE: 201809
